FAERS Safety Report 7284311-0 (Version None)
Quarter: 2011Q1

REPORT INFORMATION
  Report Type: 
  Country: None (occurrence: None)
  Receive Date: 20110209
  Receipt Date: 20110131
  Transmission Date: 20110831
  Serious: Yes (Other)
  Sender: FDA-Public Use
  Company Number: US-ASTRAZENECA-2011SE05443

PATIENT
  Age: 72 Year
  Sex: Female
  Weight: 62.6 kg

DRUGS (10)
  1. CRESTOR [Suspect]
     Indication: HYPERCHOLESTEROLAEMIA
     Route: 048
  2. ZOCOR [Suspect]
     Indication: HYPERCHOLESTEROLAEMIA
     Route: 048
     Dates: start: 20010101, end: 20030101
  3. NIACIN [Suspect]
     Indication: HYPERCHOLESTEROLAEMIA
     Route: 065
  4. NIASPAN [Concomitant]
     Indication: HIGH DENSITY LIPOPROTEIN DECREASED
     Route: 048
     Dates: start: 20080101
  5. DRONEDARONE HCL [Concomitant]
     Indication: CARDIAC FIBRILLATION
     Route: 048
     Dates: end: 20110101
  6. LIPITOR [Suspect]
     Route: 048
  7. VALSARTAN [Concomitant]
     Indication: HYPERTENSION
     Route: 048
  8. LIPITOR [Suspect]
     Route: 048
  9. LIPITOR [Suspect]
     Route: 048
  10. LIPITOR [Suspect]
     Indication: HYPERCHOLESTEROLAEMIA
     Route: 048

REACTIONS (3)
  - CARDIAC ARREST [None]
  - VASCULAR GRAFT [None]
  - VASCULAR GRAFT OCCLUSION [None]
